FAERS Safety Report 4606082-6 (Version None)
Quarter: 2005Q1

REPORT INFORMATION
  Report Type: 
  Country: None (occurrence: None)
  Receive Date: 20050303
  Receipt Date: 20041110
  Transmission Date: 20050727
  Serious: No
  Sender: FDA-Public Use
  Company Number: 200420986BWH

PATIENT
  Age: 69 Year
  Sex: Male
  Weight: 99.7913 kg

DRUGS (12)
  1. LEVITRA [Suspect]
     Indication: ERECTILE DYSFUNCTION
     Dosage: SEE IMAGE
     Route: 048
     Dates: start: 20040901, end: 20041001
  2. LEVITRA [Suspect]
     Indication: ERECTILE DYSFUNCTION
     Dosage: SEE IMAGE
     Route: 048
     Dates: start: 20041109
  3. XANAX [Concomitant]
  4. ATENOLOL [Concomitant]
  5. AVANDIA [Concomitant]
  6. CATAPRES [Concomitant]
  7. LIPITOR [Concomitant]
  8. KLOR-CON [Concomitant]
  9. VIAGRA [Concomitant]
  10. LISINOPRIL [Concomitant]
  11. CARDURA [Concomitant]
  12. HUMALOG [Concomitant]

REACTIONS (2)
  - CYANOPSIA [None]
  - SEXUAL DYSFUNCTION [None]
